FAERS Safety Report 20660475 (Version 1)
Quarter: 2022Q1

REPORT INFORMATION
  Report Type: Spontaneous
  Country: US (occurrence: US)
  Receive Date: 20220331
  Receipt Date: 20220331
  Transmission Date: 20220423
  Serious: No
  Sender: FDA-Public Use
  Company Number: US-PFIZER INC-2021800613

PATIENT
  Age: 57 Year
  Sex: Female
  Weight: 53.52 kg

DRUGS (1)
  1. IBRANCE [Suspect]
     Active Substance: PALBOCICLIB
     Indication: Breast cancer metastatic
     Dosage: 100 MG, CYCLIC(100MG, TAKES ONCE A DAY WITH 21 DAYS ON AND 7 DAYS OFF BY MOUTH
     Route: 048

REACTIONS (2)
  - Body height decreased [Unknown]
  - Product dose omission issue [Unknown]
